FAERS Safety Report 7083128-X (Version None)
Quarter: 2010Q4

REPORT INFORMATION
  Report Type: 
  Country: None (occurrence: None)
  Receive Date: 20101104
  Receipt Date: 20101028
  Transmission Date: 20110411
  Serious: Yes (Other)
  Sender: FDA-Public Use
  Company Number: US-JNJCH-2010017983

PATIENT
  Sex: Male

DRUGS (1)
  1. VISINE EYE DROPS [Suspect]
     Indication: OCULAR HYPERAEMIA
     Dosage: TEXT:UNSPECIFIED
     Route: 047

REACTIONS (8)
  - DRUG DEPENDENCE [None]
  - EYE IRRITATION [None]
  - EYE PRURITUS [None]
  - INCORRECT PRODUCT STORAGE [None]
  - MIGRAINE [None]
  - PHOTOPHOBIA [None]
  - PUPILS UNEQUAL [None]
  - VISUAL IMPAIRMENT [None]
